FAERS Safety Report 7462590-4 (Version None)
Quarter: 2011Q2

REPORT INFORMATION
  Report Type: 
  Country: None (occurrence: None)
  Receive Date: 20110506
  Receipt Date: 20110502
  Transmission Date: 20111010
  Serious: Yes (Disabling, Other)
  Sender: FDA-Public Use
  Company Number: DK-PFIZER INC-2007053849

PATIENT
  Age: 57 Year
  Sex: Male

DRUGS (6)
  1. CABERGOLINE [Suspect]
     Indication: PARKINSON'S DISEASE
     Dosage: UNK
     Route: 048
     Dates: start: 20021119, end: 20070426
  2. COMTESS [Concomitant]
     Route: 048
     Dates: start: 20000316
  3. COMBIVIR [Concomitant]
     Route: 048
  4. STOCRIN [Concomitant]
     Route: 048
  5. ACETYLSALICYLIC ACID [Concomitant]
     Route: 048
  6. MADOPAR [Concomitant]
     Route: 048
     Dates: start: 19950609

REACTIONS (3)
  - AORTIC VALVE SCLEROSIS [None]
  - DYSPNOEA [None]
  - BLINDNESS TRANSIENT [None]
